FAERS Safety Report 9538704 (Version 2)
Quarter: 2013Q4

REPORT INFORMATION
  Report Type: Spontaneous
  Country: JP (occurrence: JP)
  Receive Date: 20130920
  Receipt Date: 20131015
  Transmission Date: 20140711
  Serious: Yes (Death)
  Sender: FDA-Public Use
  Company Number: JP-NOVOPROD-387533

PATIENT
  Age: 6 Day
  Sex: Male
  Weight: 3 kg

DRUGS (2)
  1. NOVOSEVEN HI [Suspect]
     Indication: PULMONARY HAEMORRHAGE
     Dosage: 0.3 MG, QD
     Route: 042
     Dates: start: 20130902, end: 20130902
  2. NOVOSEVEN HI [Suspect]
     Indication: GASTRIC HAEMORRHAGE

REACTIONS (2)
  - Pulmonary haemorrhage [Fatal]
  - Gastric haemorrhage [Fatal]
